FAERS Safety Report 7824489-0 (Version None)
Quarter: 2011Q4

REPORT INFORMATION
  Report Type: 
  Country: None (occurrence: None)
  Receive Date: 20111018
  Receipt Date: 20111018
  Transmission Date: 20120403
  Serious: Yes (Life-Threatening, Hospitalization)
  Sender: FDA-Public Use
  Company Number: None

PATIENT
  Age: 14 Year
  Sex: Female
  Weight: 41.7309 kg

DRUGS (1)
  1. BACTRIM DS [Suspect]
     Indication: URINARY TRACT INFECTION
     Dosage: 14 TWICE DAILY ORAL
     Route: 048
     Dates: start: 20110819, end: 20110826

REACTIONS (4)
  - ORAL DISORDER [None]
  - PLATELET COUNT DECREASED [None]
  - CONTUSION [None]
  - EXCORIATION [None]
